FAERS Safety Report 15667282 (Version 2)
Quarter: 2019Q2

REPORT INFORMATION
  Report Type: Spontaneous
  Country: US (occurrence: US)
  Receive Date: 20181128
  Receipt Date: 20190605
  Transmission Date: 20190711
  Serious: No
  Sender: FDA-Public Use
  Company Number: US-ROCHE-2181587

PATIENT
  Age: 34 Year
  Sex: Female
  Weight: 59.47 kg

DRUGS (6)
  1. APAP [Concomitant]
     Active Substance: ACETAMINOPHEN
     Dosage: POST INFUSION; PM
     Route: 048
  2. OCREVUS [Suspect]
     Active Substance: OCRELIZUMAB
     Indication: MULTIPLE SCLEROSIS
     Route: 042
     Dates: start: 20180905
  3. BENADRYL [Concomitant]
     Active Substance: DIPHENHYDRAMINE HYDROCHLORIDE
     Dosage: POST INFUSION; PM
     Route: 048
  4. APAP [Concomitant]
     Active Substance: ACETAMINOPHEN
     Dosage: 30 MIN PREINFUSION
     Route: 048
     Dates: start: 20180905, end: 20180905
  5. BENADRYL [Concomitant]
     Active Substance: DIPHENHYDRAMINE HYDROCHLORIDE
     Dosage: 25-50 MG?30-60 MIN PREINFUSION
     Route: 042
     Dates: start: 20180905, end: 20180905
  6. METHYLPREDNISOLONE. [Concomitant]
     Active Substance: METHYLPREDNISOLONE
     Dosage: 30 MIN PREINFUSION
     Route: 042
     Dates: start: 20180905, end: 20180905

REACTIONS (1)
  - Peripheral swelling [Recovered/Resolved]

NARRATIVE: CASE EVENT DATE: 20180905
